FAERS Safety Report 23600967 (Version 9)
Quarter: 2024Q4

REPORT INFORMATION
  Report Type: Report from Study
  Country: ES (occurrence: ES)
  Receive Date: 20240306
  Receipt Date: 20241210
  Transmission Date: 20250115
  Serious: Yes (Other)
  Sender: ABBVIE
  Company Number: ES-ABBVIE-5662682

PATIENT
  Age: 79 Year
  Sex: Female

DRUGS (2)
  1. CARBIDOPA\LEVODOPA [Suspect]
     Active Substance: CARBIDOPA\LEVODOPA
     Indication: Parkinson^s disease
     Route: 050
     Dates: start: 20221027, end: 202405
  2. CARBIDOPA\LEVODOPA [Suspect]
     Active Substance: CARBIDOPA\LEVODOPA
     Dosage: ADJUSTED CONTINUOUS DOSE TO 1.6 ML/H
     Route: 050
     Dates: start: 202405

REACTIONS (22)
  - Choking [Recovered/Resolved with Sequelae]
  - Stoma site hypergranulation [Not Recovered/Not Resolved]
  - Pneumonia [Not Recovered/Not Resolved]
  - Restlessness [Not Recovered/Not Resolved]
  - Stoma site discharge [Not Recovered/Not Resolved]
  - Blindness unilateral [Not Recovered/Not Resolved]
  - Cardiac murmur [Not Recovered/Not Resolved]
  - Distractibility [Not Recovered/Not Resolved]
  - Stoma site haemorrhage [Not Recovered/Not Resolved]
  - Therapeutic product effect incomplete [Not Recovered/Not Resolved]
  - Disorientation [Recovering/Resolving]
  - Stoma site erythema [Not Recovered/Not Resolved]
  - Dyskinesia [Recovered/Resolved]
  - Granuloma [Not Recovered/Not Resolved]
  - Stoma site pain [Not Recovered/Not Resolved]
  - Syncope [Recovered/Resolved with Sequelae]
  - Nervousness [Unknown]
  - Anxiety [Recovering/Resolving]
  - Stoma complication [Unknown]
  - Daydreaming [Not Recovered/Not Resolved]
  - Haemorrhage [Not Recovered/Not Resolved]
  - Cognitive disorder [Unknown]

NARRATIVE: CASE EVENT DATE: 20240101
